FAERS Safety Report 10767360 (Version 2)
Quarter: 2015Q1

REPORT INFORMATION
  Report Type: Spontaneous
  Country: BE (occurrence: BE)
  Receive Date: 20150205
  Receipt Date: 20150223
  Transmission Date: 20150721
  Serious: Yes (Other)
  Sender: FDA-Public Use
  Company Number: BE-BAXTER-2015BAX005275

PATIENT
  Age: 2 Year
  Sex: Female
  Weight: 10.5 kg

DRUGS (4)
  1. GLUCION 5% [Suspect]
     Active Substance: ANHYDROUS DEXTROSE\LACTIC ACID\MAGNESIUM CHLORIDE\POTASSIUM CHLORIDE\POTASSIUM PHOSPHATE, MONOBASIC\SODIUM CHLORIDE\SODIUM LACTATE
     Indication: PYREXIA
     Dosage: NOT FURTHER SPECIFIED
     Route: 042
     Dates: start: 20150121, end: 20150124
  2. IBUPROFEN. [Concomitant]
     Active Substance: IBUPROFEN
     Indication: PYREXIA
     Route: 048
     Dates: start: 20150122, end: 20150122
  3. GLUCION 5% [Suspect]
     Active Substance: ANHYDROUS DEXTROSE\LACTIC ACID\MAGNESIUM CHLORIDE\POTASSIUM CHLORIDE\POTASSIUM PHOSPHATE, MONOBASIC\SODIUM CHLORIDE\SODIUM LACTATE
     Indication: DECREASED APPETITE
  4. DAFALGAN [Concomitant]
     Active Substance: ACETAMINOPHEN
     Indication: PYREXIA
     Route: 054
     Dates: start: 20150122, end: 20150122

REACTIONS (2)
  - Hypernatraemia [Recovered/Resolved]
  - Blood chloride increased [Recovered/Resolved]

NARRATIVE: CASE EVENT DATE: 20150123
